FAERS Safety Report 5100948-9 (Version None)
Quarter: 2006Q3

REPORT INFORMATION
  Report Type: 
  Country: None (occurrence: None)
  Receive Date: 20060911
  Receipt Date: 20060807
  Transmission Date: 20061208
  Serious: Yes (Disabling, Other)
  Sender: FDA-Public Use
  Company Number: PHEH2006US10095

PATIENT
  Age: 74 Year
  Sex: Female

DRUGS (12)
  1. SANDOSTATIN LAR [Suspect]
     Indication: CARCINOID SYNDROME
     Dosage: UNK, MONTHLY
     Dates: start: 20060501
  2. LASIX [Concomitant]
  3. LEVOXYL [Concomitant]
  4. NORVASC [Concomitant]
  5. ATENOLOL [Concomitant]
  6. DIGITEK [Concomitant]
  7. ALTACE [Concomitant]
  8. ECOTRIN [Concomitant]
  9. CRESTOR [Concomitant]
  10. FOSAMAX [Concomitant]
  11. XANAX [Concomitant]
  12. AMBIEN [Concomitant]

REACTIONS (6)
  - CEREBRAL ATROPHY [None]
  - CEREBRAL ISCHAEMIA [None]
  - DIPLOPIA [None]
  - IVTH NERVE PARALYSIS [None]
  - NUCLEAR MAGNETIC RESONANCE IMAGING BRAIN ABNORMAL [None]
  - OPTIC NEUROPATHY [None]
